FAERS Safety Report 9460470 (Version 1)
Quarter: 2013Q3

REPORT INFORMATION
  Report Type: Spontaneous
  Country: US (occurrence: US)
  Receive Date: 20130815
  Receipt Date: 20130815
  Transmission Date: 20140515
  Serious: No
  Sender: FDA-Public Use
  Company Number: US-PFIZER INC-2013236403

PATIENT
  Age: 61 Year
  Sex: Female
  Weight: 63.49 kg

DRUGS (4)
  1. LYRICA [Suspect]
     Indication: FIBROMYALGIA
     Dosage: 75 MG, 4X/DAY
     Route: 048
     Dates: start: 2008
  2. ROBAXIN [Concomitant]
     Dosage: UNK
  3. VICODIN [Concomitant]
     Dosage: UNK
  4. PRISTIQ [Concomitant]
     Dosage: UNK

REACTIONS (5)
  - Drug withdrawal syndrome [Unknown]
  - Insomnia [Unknown]
  - Neuralgia [Unknown]
  - Hyperhidrosis [Unknown]
  - Influenza like illness [Unknown]
